FAERS Safety Report 24760434 (Version 1)
Quarter: 2024Q4

REPORT INFORMATION
  Report Type: Report from Study
  Country: CA (occurrence: CA)
  Receive Date: 20241220
  Receipt Date: 20241220
  Transmission Date: 20250114
  Serious: Yes (Hospitalization, Other)
  Sender: SANDOZ
  Company Number: CA-002147023-NVSC2022CA287050

PATIENT
  Sex: Male

DRUGS (2)
  1. HYRIMOZ [Suspect]
     Active Substance: ADALIMUMAB-ADAZ
     Indication: Crohn^s disease
     Dosage: 40 MG, Q2W
     Route: 058
     Dates: start: 20220119
  2. HUMIRA [Suspect]
     Active Substance: ADALIMUMAB
     Indication: Product used for unknown indication
     Route: 065

REACTIONS (5)
  - Guillain-Barre syndrome [Unknown]
  - General physical health deterioration [Unknown]
  - Colectomy [Unknown]
  - Diarrhoea [Unknown]
  - Frequent bowel movements [Recovering/Resolving]
